FAERS Safety Report 17753371 (Version 2)
Quarter: 2020Q2

REPORT INFORMATION
  Report Type: Spontaneous
  Country: US (occurrence: US)
  Receive Date: 20200506
  Receipt Date: 20200507
  Transmission Date: 20200714
  Serious: No
  Sender: FDA-Public Use
  Company Number: US-PFIZER INC-2020180956

PATIENT
  Age: 65 Year

DRUGS (1)
  1. CELECOXIB. [Suspect]
     Active Substance: CELECOXIB
     Indication: SPINAL STENOSIS
     Dosage: 200 MG, 1X/DAY (EVERY MORNING WITH FOOD)
     Route: 048

REACTIONS (2)
  - Therapeutic product effect decreased [Unknown]
  - Chest discomfort [Unknown]
